FAERS Safety Report 7827640-1 (Version None)
Quarter: 2011Q4

REPORT INFORMATION
  Report Type: 
  Country: None (occurrence: None)
  Receive Date: 20111020
  Receipt Date: 20111012
  Transmission Date: 20120403
  Serious: Yes (Hospitalization)
  Sender: FDA-Public Use
  Company Number: PHEH2011US06739

PATIENT
  Sex: Male

DRUGS (5)
  1. CALCIUM CARBONATE W/VITAMIN D NOS [Concomitant]
     Dosage: 1200 MG/1000 IU
  2. TERAZOSIN HCL [Concomitant]
     Dosage: 1 MG, UNK
  3. CHANTIX [Concomitant]
  4. RECLAST [Suspect]
     Dosage: UNK
     Route: 042
     Dates: start: 20110830
  5. FINASTERIDE [Concomitant]
     Dosage: 5 MG, UNK

REACTIONS (8)
  - LIP SWELLING [None]
  - SWOLLEN TONGUE [None]
  - DEHYDRATION [None]
  - HYPOPHAGIA [None]
  - ORAL INFECTION [None]
  - SWELLING FACE [None]
  - OEDEMA MOUTH [None]
  - MOUTH ULCERATION [None]
